FAERS Safety Report 6377904-6 (Version None)
Quarter: 2009Q3

REPORT INFORMATION
  Report Type: 
  Country: None (occurrence: None)
  Receive Date: 20090925
  Receipt Date: 20090916
  Transmission Date: 20100115
  Serious: Yes (Other)
  Sender: FDA-Public Use
  Company Number: PHHY2009BR40174

PATIENT
  Sex: Female

DRUGS (5)
  1. EXELON [Suspect]
     Indication: DEMENTIA ALZHEIMER'S TYPE
     Dosage: 9MG/5CM2 1 PATCH DAILY
     Route: 062
     Dates: start: 20090801, end: 20090910
  2. EXELON [Suspect]
     Dosage: 18MG/10CM2 1 PATCH DAILY
     Route: 062
     Dates: start: 20090911
  3. EXELON [Suspect]
     Dosage: 3MG
  4. PHENOBARBITAL [Concomitant]
     Indication: CONVULSION
     Dosage: 100MG 1 TAB DAILY
     Dates: start: 19260101
  5. MIRTAZAPINE [Concomitant]
     Indication: DEPRESSION
     Dosage: 25MG 1 TAB DAILY
     Route: 048

REACTIONS (3)
  - BLOOD PRESSURE INCREASED [None]
  - DIARRHOEA [None]
  - VOMITING [None]
